FAERS Safety Report 6717323-3 (Version None)
Quarter: 2010Q2

REPORT INFORMATION
  Report Type: 
  Country: None (occurrence: None)
  Receive Date: 20100505
  Receipt Date: 20050818
  Transmission Date: 20101027
  Serious: Yes (Life-Threatening)
  Sender: FDA-Public Use
  Company Number: 2009-3024

PATIENT
  Age: 66 Year
  Sex: Female

DRUGS (4)
  1. APO-CO AMPOULES (APO-GO) (APOMORPHINE HYDROCHLORIDE) [Suspect]
     Indication: PARKINSON'S DISEASE
     Dosage: SUBCUTANEOUS
     Route: 058
     Dates: start: 20050601
  2. PRAMIPEXOLE DIHYDROCHLORIDE [Suspect]
     Indication: PARKINSON'S DISEASE
     Dosage: ORAL
     Route: 048
  3. NACOM RETARD(SINEMET)   (CARBIDOPA, LEVODOPA) [Concomitant]
  4. DOMPERIDONE   (DOMPERIDONE)   (CARBIDOPA, LEVODOPA) [Concomitant]

REACTIONS (7)
  - ANXIETY [None]
  - CONTUSION [None]
  - NAUSEA [None]
  - PHOBIA OF DRIVING [None]
  - RIB FRACTURE [None]
  - ROAD TRAFFIC ACCIDENT [None]
  - SLEEP ATTACKS [None]
